FAERS Safety Report 6617881-3 (Version None)
Quarter: 2010Q1

REPORT INFORMATION
  Report Type: 
  Country: None (occurrence: None)
  Receive Date: 20100308
  Receipt Date: 20100224
  Transmission Date: 20100710
  Serious: Yes (Other)
  Sender: FDA-Public Use
  Company Number: US-ELI_LILLY_AND_COMPANY-US201002006866

PATIENT
  Sex: Male

DRUGS (1)
  1. CYMBALTA [Suspect]
     Route: 048
     Dates: start: 20070301, end: 20080901

REACTIONS (2)
  - SCAR [None]
  - SKIN ULCER [None]
